FAERS Safety Report 13920968 (Version 1)
Quarter: 2017Q3

REPORT INFORMATION
  Report Type: Report from Study
  Country: MX (occurrence: MX)
  Receive Date: 20170830
  Receipt Date: 20170830
  Transmission Date: 20171127
  Serious: Yes (Hospitalization)
  Sender: FDA-Public Use
  Company Number: MX-UCBSA-2017018841

PATIENT
  Age: 1 Year
  Sex: Female
  Weight: 11 kg

DRUGS (5)
  1. SODIUM BICARBONATE. [Concomitant]
     Active Substance: SODIUM BICARBONATE
     Indication: RENAL TUBULAR ACIDOSIS
     Dosage: 2ML/8 HRS
     Dates: start: 20160224
  2. LEVETIRACETAM. [Suspect]
     Active Substance: LEVETIRACETAM
     Dosage: 3 ML, 2X/DAY (BID)
     Route: 048
     Dates: start: 20161015
  3. LEVETIRACETAM. [Suspect]
     Active Substance: LEVETIRACETAM
     Dosage: 3.2 ML, 2X/DAY (BID)
     Route: 048
     Dates: start: 201703
  4. DEPAKENE [Concomitant]
     Active Substance: VALPROIC ACID
     Indication: EPILEPSY
     Dosage: 2.5 ML AT 8:00 AND 15:00 HRS. AND 3.0 ML AT 21:00 HRS
     Route: 048
     Dates: start: 20170815
  5. LEVETIRACETAM. [Suspect]
     Active Substance: LEVETIRACETAM
     Indication: EPILEPSY
     Dosage: 1.5 ML, 2X/DAY (BID)
     Route: 048
     Dates: start: 20161001, end: 201610

REACTIONS (4)
  - Urinary tract infection [Recovered/Resolved]
  - Drug level fluctuating [Unknown]
  - Intentional product misuse [Unknown]
  - Seizure [Recovering/Resolving]

NARRATIVE: CASE EVENT DATE: 20161001
